FAERS Safety Report 16609208 (Version 1)
Quarter: 2019Q3

REPORT INFORMATION
  Report Type: Spontaneous
  Country: US (occurrence: US)
  Receive Date: 20190607
  Receipt Date: 20190607
  Transmission Date: 20191004
  Serious: Yes (Hospitalization, Disabling)
  Sender: FDA-Public Use
  Company Number: None

PATIENT
  Age: 52 Year
  Sex: Female
  Weight: 110.9 kg

DRUGS (9)
  1. INSULIN GLARGINE [Concomitant]
     Active Substance: INSULIN GLARGINE
  2. JARDIANCE [Suspect]
     Active Substance: EMPAGLIFLOZIN
     Indication: DIABETES MELLITUS
     Route: 048
     Dates: start: 20170823, end: 20190427
  3. ALPRAZOLAM. [Concomitant]
     Active Substance: ALPRAZOLAM
  4. HYDROCODONE BITARTRATE AND ACETAMINOPHEN [Concomitant]
     Active Substance: ACETAMINOPHEN\HYDROCODONE BITARTRATE
  5. FENOFIBRATE. [Concomitant]
     Active Substance: FENOFIBRATE
  6. GABAPENTIN. [Concomitant]
     Active Substance: GABAPENTIN
  7. ZOLPIDEM [Concomitant]
     Active Substance: ZOLPIDEM TARTRATE
  8. TIZANIDINE. [Concomitant]
     Active Substance: TIZANIDINE
  9. DULOXETINE. [Concomitant]
     Active Substance: DULOXETINE

REACTIONS (1)
  - Pancreatitis necrotising [None]

NARRATIVE: CASE EVENT DATE: 20190427
